FAERS Safety Report 12444747 (Version 1)
Quarter: 2016Q2

REPORT INFORMATION
  Report Type: Report from Study
  Country: DE (occurrence: DE)
  Receive Date: 20160607
  Receipt Date: 20160607
  Transmission Date: 20160815
  Serious: Yes (Hospitalization)
  Sender: FDA-Public Use
  Company Number: DE-BIOGEN-2016BI00248168

PATIENT
  Age: 43 Year
  Sex: Male
  Weight: 72 kg

DRUGS (4)
  1. CORTISONE [Concomitant]
     Active Substance: CORTISONE\HYDROCORTISONE
     Indication: NASAL DISORDER
     Route: 065
     Dates: start: 20160517
  2. PLEGRIDY [Suspect]
     Active Substance: PEGINTERFERON BETA-1A
     Indication: MULTIPLE SCLEROSIS
     Route: 065
     Dates: start: 20150407
  3. PANTHENOL [Concomitant]
     Active Substance: PANTHENOL
     Indication: NASAL DISORDER
     Route: 065
     Dates: start: 20160517
  4. EPHEDRINE. [Concomitant]
     Active Substance: EPHEDRINE
     Indication: NASAL DISORDER
     Route: 065
     Dates: start: 20160517

REACTIONS (2)
  - Nasal disorder [Recovered/Resolved with Sequelae]
  - Platelet count decreased [Recovered/Resolved]

NARRATIVE: CASE EVENT DATE: 20160502
